FAERS Safety Report 4730320-2 (Version None)
Quarter: 2005Q3

REPORT INFORMATION
  Report Type: 
  Country: None (occurrence: None)
  Receive Date: 20050801
  Receipt Date: 20050721
  Transmission Date: 20060218
  Serious: Yes (Other)
  Sender: FDA-Public Use
  Company Number: US-JNJFOC-20050704715

PATIENT
  Sex: Male
  Weight: 99.79 kg

DRUGS (2)
  1. FENTANYL [Suspect]
     Indication: ACCIDENTAL EXPOSURE
     Route: 050
  2. DIURETIC [Concomitant]

REACTIONS (7)
  - ACCIDENTAL EXPOSURE [None]
  - DEVICE FAILURE [None]
  - HYPERHIDROSIS [None]
  - HYPOVENTILATION [None]
  - LOSS OF CONSCIOUSNESS [None]
  - SOMNOLENCE [None]
  - URINARY RETENTION [None]
